FAERS Safety Report 11195109 (Version 1)
Quarter: 2015Q2

REPORT INFORMATION
  Report Type: Spontaneous
  Country: JP (occurrence: None)
  Receive Date: 20150615
  Receipt Date: 20150615
  Transmission Date: 20150821
  Serious: Yes (Other)
  Sender: FDA-Public Use
  Company Number: FK201502679

PATIENT
  Age: 84 Year
  Sex: Male

DRUGS (2)
  1. REVLIMID [Suspect]
     Active Substance: LENALIDOMIDE
     Indication: PLASMA CELL MYELOMA
     Dosage: DAYS: 1-21
  2. DEXAMETHASONE INJECTION (MANUFACTURER UNKNOWN) (DEXAMETHASONE SODIUM PHOSPHATE) (DEXAMETHASONE SODIUM PHOSPHATE) [Suspect]
     Active Substance: DEXAMETHASONE SODIUM PHOSPHATE
     Indication: PLASMA CELL MYELOMA
     Dosage: DAYS; 1, 8, AND 15

REACTIONS (2)
  - Rash [None]
  - Neutropenia [None]
